FAERS Safety Report 14497129 (Version 3)
Quarter: 2018Q2

REPORT INFORMATION
  Report Type: Spontaneous
  Country: DE (occurrence: DE)
  Receive Date: 20180207
  Receipt Date: 20180407
  Transmission Date: 20180711
  Serious: Yes (Life-Threatening, Hospitalization, Other)
  Sender: FDA-Public Use
  Company Number: DE-AUROBINDO-AUR-APL-2018-005122

PATIENT
  Age: 48 Year
  Sex: Male

DRUGS (2)
  1. IBUPROFEN FILM-COATED TABLETS [Suspect]
     Active Substance: IBUPROFEN
     Indication: PAIN
     Dosage: 90 DF, 3X/DAY (90 TABLETS, HIGH DOSE)
     Route: 048
  2. IBUPROFEN FILM-COATED TABLETS [Suspect]
     Active Substance: IBUPROFEN
     Indication: ASTHMA
     Dosage: 800 MG, ONCE A DAY
     Route: 048

REACTIONS (12)
  - Acute kidney injury [Unknown]
  - Circulatory collapse [Recovering/Resolving]
  - Hypotension [Unknown]
  - Toxicity to various agents [Unknown]
  - Tachycardia [Unknown]
  - Intentional overdose [Unknown]
  - Coma scale abnormal [Unknown]
  - Metabolic acidosis [Unknown]
  - Dehydration [Recovering/Resolving]
  - Suicide attempt [Recovering/Resolving]
  - Product prescribing issue [Unknown]
  - Somnolence [Unknown]
